FAERS Safety Report 11657903 (Version 1)
Quarter: 2015Q4

REPORT INFORMATION
  Report Type: Report from Study
  Country: US (occurrence: US)
  Receive Date: 20151023
  Receipt Date: 20151023
  Transmission Date: 20160304
  Serious: No
  Sender: FDA-Public Use
  Company Number: US-ABBVIE-15P-163-1364421-00

PATIENT
  Sex: Female

DRUGS (17)
  1. AYGESTIN [Suspect]
     Active Substance: NORETHINDRONE ACETATE
     Route: 048
     Dates: start: 2012
  2. ALPRAZOLAM. [Concomitant]
     Active Substance: ALPRAZOLAM
     Indication: PRODUCT USED FOR UNKNOWN INDICATION
  3. HYDROCODONE [Concomitant]
     Active Substance: HYDROCODONE
     Indication: PRODUCT USED FOR UNKNOWN INDICATION
  4. LUPRON DEPOT [Suspect]
     Active Substance: LEUPROLIDE ACETATE
     Route: 050
     Dates: start: 201410, end: 20150303
  5. AMITRIPTYLINE [Concomitant]
     Active Substance: AMITRIPTYLINE
     Indication: PRODUCT USED FOR UNKNOWN INDICATION
  6. UROGESIC BLUE [Concomitant]
     Active Substance: HYOSCYAMINE SULFATE\METHENAMINE\METHYLENE BLUE\SODIUM PHOSPHATE, MONOBASIC
     Indication: PRODUCT USED FOR UNKNOWN INDICATION
     Dosage: UP TO 4 TIMES PER DAY
  7. LUPRON DEPOT [Suspect]
     Active Substance: LEUPROLIDE ACETATE
     Route: 050
     Dates: start: 2008
  8. ELMIRON [Concomitant]
     Active Substance: PENTOSAN POLYSULFATE SODIUM
     Indication: PRODUCT USED FOR UNKNOWN INDICATION
  9. LUPRON DEPOT [Suspect]
     Active Substance: LEUPROLIDE ACETATE
     Indication: ENDOMETRIOSIS
     Route: 050
     Dates: start: 2000
  10. AYGESTIN [Suspect]
     Active Substance: NORETHINDRONE ACETATE
     Indication: ENDOMETRIOSIS
     Route: 048
     Dates: start: 2000
  11. EMITRIX [Concomitant]
     Indication: PRODUCT USED FOR UNKNOWN INDICATION
  12. PHENERGAN [Concomitant]
     Active Substance: PROMETHAZINE HYDROCHLORIDE
     Indication: PRODUCT USED FOR UNKNOWN INDICATION
  13. LUPRON DEPOT [Suspect]
     Active Substance: LEUPROLIDE ACETATE
     Route: 050
     Dates: start: 2012
  14. AYGESTIN [Suspect]
     Active Substance: NORETHINDRONE ACETATE
     Dosage: WHEN NOT TAKING LUPRON
     Route: 048
  15. AYGESTIN [Suspect]
     Active Substance: NORETHINDRONE ACETATE
     Route: 048
     Dates: start: 201410, end: 20150303
  16. AYGESTIN [Suspect]
     Active Substance: NORETHINDRONE ACETATE
     Route: 048
     Dates: start: 2008
  17. HYDROXYZINE [Concomitant]
     Active Substance: HYDROXYZINE\HYDROXYZINE HYDROCHLORIDE
     Indication: PRODUCT USED FOR UNKNOWN INDICATION

REACTIONS (9)
  - Adnexa uteri pain [Unknown]
  - Migraine [Unknown]
  - Mood altered [Unknown]
  - Memory impairment [Unknown]
  - Vulvovaginal dryness [Unknown]
  - Hot flush [Unknown]
  - Libido decreased [Unknown]
  - Depression [Unknown]
  - Cystitis interstitial [Unknown]

NARRATIVE: CASE EVENT DATE: 2013
